FAERS Safety Report 4694925-X (Version None)
Quarter: 2005Q2

REPORT INFORMATION
  Report Type: 
  Country: None (occurrence: None)
  Receive Date: 20050620
  Receipt Date: 20050607
  Transmission Date: 20051028
  Serious: Yes (Other)
  Sender: FDA-Public Use
  Company Number: 2005085764

PATIENT
  Sex: Male
  Weight: 1.9432 kg

DRUGS (2)
  1. BENADRYL           ALLERGY/SINUS [Suspect]
     Indication: DRUG EXPOSURE DURING PREGNANCY
     Dosage: 1-2 TABLETS, 2-3 TIMES PER WEEK, PLACENTAL
     Route: 064
     Dates: start: 20050412, end: 20050515
  2. LORATADINE [Suspect]
     Indication: DRUG EXPOSURE DURING PREGNANCY
     Dosage: DOSE UNSPECIFIED, PLACENTAL
     Route: 064
     Dates: start: 20050515, end: 20050515

REACTIONS (4)
  - AMPHETAMINES POSITIVE [None]
  - DRUG EXPOSURE DURING PREGNANCY [None]
  - JAUNDICE [None]
  - SMALL FOR DATES BABY [None]
